FAERS Safety Report 14763121 (Version 2)
Quarter: 2018Q2

REPORT INFORMATION
  Report Type: Spontaneous
  Country: JP (occurrence: JP)
  Receive Date: 20180416
  Receipt Date: 20180416
  Transmission Date: 20180711
  Serious: Yes (Other)
  Sender: FDA-Public Use
  Company Number: GXJP2018JP000883

PATIENT
  Age: 77 Year
  Sex: Male

DRUGS (7)
  1. PIRARUBICIN [Suspect]
     Active Substance: PIRARUBICIN
     Indication: MYCOSIS FUNGOIDES
     Dosage: UNK
     Route: 065
  2. VINCRISTINE [Suspect]
     Active Substance: VINCRISTINE
     Indication: MYCOSIS FUNGOIDES
     Dosage: UNK
     Route: 065
  3. BEXAROTENE. [Suspect]
     Active Substance: BEXAROTENE
     Indication: MYCOSIS FUNGOIDES
     Dosage: UNK
     Route: 065
  4. ETOPOSIDE. [Suspect]
     Active Substance: ETOPOSIDE
     Indication: MYCOSIS FUNGOIDES
     Dosage: UNK
     Route: 065
  5. PREDNISOLONE. [Suspect]
     Active Substance: PREDNISOLONE
     Indication: MYCOSIS FUNGOIDES
     Dosage: UNK
     Route: 065
  6. CYCLOPHOSPHAMIDE. [Suspect]
     Active Substance: CYCLOPHOSPHAMIDE
     Indication: MYCOSIS FUNGOIDES
     Dosage: UNK
     Route: 065
  7. INTERFERON GAMMA-1A [Suspect]
     Active Substance: INTERFERON GAMMA-1A
     Indication: MYCOSIS FUNGOIDES
     Dosage: UNK
     Route: 065

REACTIONS (4)
  - Eastern Cooperative Oncology Group performance status worsened [Unknown]
  - Sepsis [Unknown]
  - Product use in unapproved indication [Unknown]
  - Paraplegia [Recovering/Resolving]
